FAERS Safety Report 10304022 (Version 3)
Quarter: 2014Q4

REPORT INFORMATION
  Report Type: Report from Study
  Country: ES (occurrence: ES)
  Receive Date: 20140714
  Receipt Date: 20141016
  Transmission Date: 20150528
  Serious: Yes (Hospitalization, Other)
  Sender: FDA-Public Use
  Company Number: ES-B.I. PHARMACEUTICALS,INC./RIDGEFIELD-2010-ES-00272ES

PATIENT
  Age: 50 Year
  Sex: Male
  Weight: 70.4 kg

DRUGS (7)
  1. BIBW 2992 [Suspect]
     Active Substance: AFATINIB
     Indication: NON-SMALL CELL LUNG CANCER
     Dosage: 30 MG
     Route: 048
     Dates: start: 20100721, end: 20101109
  2. ZOMETA [Concomitant]
     Active Substance: ZOLEDRONIC ACID
     Indication: METASTASES TO BONE
     Route: 042
     Dates: start: 20100720
  3. NEURONTIN [Concomitant]
     Active Substance: GABAPENTIN
     Indication: TUMOUR PAIN
     Route: 048
     Dates: start: 20100907
  4. OXYCONTIN [Concomitant]
     Active Substance: OXYCODONE HYDROCHLORIDE
     Indication: TUMOUR PAIN
     Route: 048
     Dates: start: 20100928
  5. SIROLIMUS. [Suspect]
     Active Substance: SIROLIMUS
     Dosage: 4 MG
     Route: 048
     Dates: start: 20100713, end: 20101109
  6. ACTIQ [Concomitant]
     Active Substance: FENTANYL CITRATE
     Indication: TUMOUR PAIN
     Route: 048
     Dates: start: 20100720
  7. SIROLIMUS. [Suspect]
     Active Substance: SIROLIMUS
     Indication: NON-SMALL CELL LUNG CANCER
     Dosage: 1 MG
     Route: 048
     Dates: start: 20100713, end: 20101109

REACTIONS (1)
  - Pneumonia fungal [Recovered/Resolved]

NARRATIVE: CASE EVENT DATE: 20101109
